FAERS Safety Report 23406480 (Version 1)
Quarter: 2024Q1

REPORT INFORMATION
  Report Type: Spontaneous
  Country: ZA (occurrence: None)
  Receive Date: 20240116
  Receipt Date: 20240116
  Transmission Date: 20240409
  Serious: Yes (Death, Hospitalization, Other)
  Sender: FDA-Public Use
  Company Number: 2024A010429

PATIENT
  Age: 32872 Day

DRUGS (4)
  1. BUDESONIDE\FORMOTEROL [Suspect]
     Active Substance: BUDESONIDE\FORMOTEROL
     Indication: Asthma
     Dosage: 120 DOSE 160/4.5 MCG UNKNOWN
     Route: 055
  2. ATIVAN [Concomitant]
     Active Substance: LORAZEPAM
     Indication: Anxiety
  3. DORMICUM [Concomitant]
  4. MORPHINE SULPH FRESENIUS [Concomitant]

REACTIONS (1)
  - Death [Fatal]
